FAERS Safety Report 6278199-4 (Version None)
Quarter: 2009Q3

REPORT INFORMATION
  Report Type: 
  Country: None (occurrence: None)
  Receive Date: 20090722
  Receipt Date: 20090715
  Transmission Date: 20100115
  Serious: Yes (Life-Threatening, Hospitalization, Other)
  Sender: FDA-Public Use
  Company Number: DE-ABBOTT-09P-062-0577888-00

PATIENT
  Sex: Male
  Weight: 118 kg

DRUGS (5)
  1. AKINETON [Suspect]
     Indication: DRUG USE FOR UNKNOWN INDICATION
     Dosage: 1 X 1 PROLONGED-RELEASED TABLET AT 4M
     Route: 048
     Dates: start: 20081110, end: 20090109
  2. AKINETON [Suspect]
     Dosage: BREAKS; 13-15 NOV 2008 AND 8-30 DEC 208
  3. HALDOL [Suspect]
     Indication: SCHIZOPHRENIA, PARANOID TYPE
     Route: 048
     Dates: start: 20081107, end: 20090106
  4. TAVOR [Suspect]
     Indication: DRUG USE FOR UNKNOWN INDICATION
     Dosage: SINGLE DOSE DIFFERENT;BREAK 13-15 NOV 20
     Route: 048
     Dates: start: 20081110, end: 20090109
  5. LEPONEX [Concomitant]
     Indication: DRUG USE FOR UNKNOWN INDICATION
     Dosage: 25/50/100MG
     Route: 048
     Dates: start: 20081128

REACTIONS (1)
  - HEPATITIS ACUTE [None]
